FAERS Safety Report 21064213 (Version 2)
Quarter: 2022Q3

REPORT INFORMATION
  Report Type: Spontaneous
  Country: GB (occurrence: None)
  Receive Date: 20220711
  Receipt Date: 20220721
  Transmission Date: 20221026
  Serious: Yes (Death, Other)
  Sender: FDA-Public Use
  Company Number: GB-MHRA-MED-202206281746475200-HJGYB

PATIENT
  Sex: Male

DRUGS (4)
  1. RISDIPLAM [Suspect]
     Active Substance: RISDIPLAM
     Indication: Spinal muscular atrophy
     Dosage: DRUG DOSAGE FORM: 244
     Route: 065
     Dates: start: 20210503, end: 20220619
  2. MOVICOL [Concomitant]
     Active Substance: POLYETHYLENE GLYCOL 3350\POTASSIUM CHLORIDE\SODIUM BICARBONATE\SODIUM CHLORIDE
  3. ALBUTEROL [Concomitant]
     Active Substance: ALBUTEROL
  4. SENNA [Concomitant]
     Active Substance: SENNA LEAF\SENNOSIDES\SENNOSIDES A AND B

REACTIONS (7)
  - Death [Fatal]
  - Aspiration [Unknown]
  - Sepsis [Unknown]
  - Respiratory failure [Not Recovered/Not Resolved]
  - Chest discomfort [Unknown]
  - Illness [Unknown]
  - Vomiting [Unknown]
